FAERS Safety Report 21453901 (Version 2)
Quarter: 2024Q2

REPORT INFORMATION
  Report Type: Spontaneous
  Country: US (occurrence: US)
  Receive Date: 20221013
  Receipt Date: 20240406
  Transmission Date: 20240716
  Serious: No
  Sender: FDA-Public Use
  Company Number: US-SA-SAC20221010000949

PATIENT
  Age: 22 Year
  Sex: Female

DRUGS (11)
  1. DUPIXENT [Suspect]
     Active Substance: DUPILUMAB
     Indication: Dermatitis atopic
     Dosage: 300 MG, QOW
     Route: 058
     Dates: start: 20200211
  2. ACYCLOVIR [Concomitant]
     Active Substance: ACYCLOVIR
  3. MELOXICAM [Concomitant]
     Active Substance: MELOXICAM
  4. PREDNISONE [Concomitant]
     Active Substance: PREDNISONE
  5. TRETINOIN [Concomitant]
     Active Substance: TRETINOIN
  6. DEXTROAMPHET SACCHARAT, AMPHET ASPARTATE, DEXTROAMPHET SULFATE AND AMP [Concomitant]
     Active Substance: AMPHETAMINE ASPARTATE\AMPHETAMINE ASPARTATE MONOHYDRATE\AMPHETAMINE SULFATE\DEXTROAMPHETAMINE SACCHA
  7. HYDROCORTISONE [Concomitant]
     Active Substance: HYDROCORTISONE
  8. MEDROXYPROGESTERONE ACETATE [Concomitant]
     Active Substance: MEDROXYPROGESTERONE ACETATE
  9. ONDANSETRON [Concomitant]
     Active Substance: ONDANSETRON
  10. OSELTAMIVIR [Concomitant]
     Active Substance: OSELTAMIVIR
  11. TRETINOIN [Concomitant]
     Active Substance: TRETINOIN

REACTIONS (6)
  - Sleep disorder [Not Recovered/Not Resolved]
  - Pruritus [Not Recovered/Not Resolved]
  - Discomfort [Not Recovered/Not Resolved]
  - Sleep disorder due to a general medical condition [Not Recovered/Not Resolved]
  - Rash [Not Recovered/Not Resolved]
  - Condition aggravated [Not Recovered/Not Resolved]

NARRATIVE: CASE EVENT DATE: 20240201
